FAERS Safety Report 24964190 (Version 2)
Quarter: 2025Q1

REPORT INFORMATION
  Report Type: Spontaneous
  Country: US (occurrence: US)
  Receive Date: 20250213
  Receipt Date: 20250304
  Transmission Date: 20250408
  Serious: Yes (Other)
  Sender: ROCHE
  Company Number: US-ROCHE-10000202494

PATIENT
  Age: 46 Year
  Sex: Female
  Weight: 113.39 kg

DRUGS (2)
  1. XOLAIR PFS [Suspect]
     Active Substance: OMALIZUMAB
     Indication: Urticaria
     Dosage: STRENGTH: 150 MG/ML
     Route: 058
     Dates: start: 202312
  2. XOLAIR PFS [Suspect]
     Active Substance: OMALIZUMAB
     Indication: Idiopathic urticaria

REACTIONS (4)
  - Incorrect dose administered [Unknown]
  - Device defective [Unknown]
  - No adverse event [Unknown]
  - Needle issue [Unknown]

NARRATIVE: CASE EVENT DATE: 20250205
